FAERS Safety Report 5330827-3 (Version None)
Quarter: 2007Q2

REPORT INFORMATION
  Report Type: 
  Country: None (occurrence: None)
  Receive Date: 20070522
  Receipt Date: 20070511
  Transmission Date: 20071010
  Serious: Yes (Death)
  Sender: FDA-Public Use
  Company Number: HQWYE147811MAY07

PATIENT
  Sex: Female

DRUGS (6)
  1. PROPRANOLOL HYDROCHLORIDE [Suspect]
     Dosage: UNSPECIFIED DOSE AND REGIMEN
     Route: 065
  2. PARACETAMOL [Interacting]
     Dosage: UNSPECIFIED DOSE AND REGIMEN
     Route: 065
  3. DOXEPIN HCL [Interacting]
     Dosage: UNSPECIFIED DOSE AND REGIMEN
     Route: 065
  4. METHAMPHETAMINE HYDROCHLORIDE [Interacting]
     Dosage: UNKNOWN AMOUNT TAKEN THE DAY BEFORE DEATH
     Route: 065
  5. NALTREXONE [Interacting]
     Indication: DRUG DEPENDENCE
     Dosage: UNSPECIFIED DOSE AND REGIMEN
     Route: 059
  6. DIAZEPAM [Interacting]
     Dosage: UNSPECIFIED DOSE AND REGIMEN
     Route: 065

REACTIONS (3)
  - DELIRIUM [None]
  - DRUG INTERACTION [None]
  - IMPLANT SITE PAIN [None]
